FAERS Safety Report 13523071 (Version 2)
Quarter: 2017Q2

REPORT INFORMATION
  Report Type: Report from Study
  Country: IN (occurrence: IN)
  Receive Date: 20170508
  Receipt Date: 20170515
  Transmission Date: 20170830
  Serious: Yes (Death, Other)
  Sender: FDA-Public Use
  Company Number: IN-BRISTOL-MYERS SQUIBB COMPANY-BMS-2017-037827

PATIENT
  Age: 19 Year
  Sex: Female

DRUGS (1)
  1. DASATINIB [Suspect]
     Active Substance: DASATINIB
     Indication: CHRONIC MYELOID LEUKAEMIA
     Dosage: 100 MG, ONE TIME DOSE
     Route: 048
     Dates: start: 20160331, end: 20170425

REACTIONS (2)
  - Malignant neoplasm progression [Fatal]
  - Respiratory disorder [Unknown]
